FAERS Safety Report 10268135 (Version 1)
Quarter: 2014Q2

REPORT INFORMATION
  Report Type: Report from Study
  Country: US (occurrence: US)
  Receive Date: 20140630
  Receipt Date: 20140630
  Transmission Date: 20141212
  Serious: Yes (Hospitalization)
  Sender: FDA-Public Use
  Company Number: US-ACTELION-A-US2014-100803

PATIENT
  Age: 52 Year
  Sex: Female

DRUGS (20)
  1. VELETRI [Suspect]
     Indication: PULMONARY ARTERIAL HYPERTENSION
     Dosage: 10 NG/KG, PER MIN
     Route: 042
     Dates: start: 20140606
  2. VELETRI [Suspect]
     Dosage: 8 NG/KG, PER MIN
     Route: 042
  3. WARFARIN [Concomitant]
  4. SPIRIVA [Concomitant]
  5. PREDNISONE [Concomitant]
  6. POTASSIUM [Concomitant]
  7. OMEPRAZOLE [Concomitant]
  8. NITROSTAT [Concomitant]
  9. MACROBID [Concomitant]
  10. DULERA [Concomitant]
  11. METOPROLOL [Concomitant]
  12. COZAAR [Concomitant]
  13. IPRATROPIUM [Concomitant]
  14. FUROSEMIDE [Concomitant]
  15. FLONASE [Concomitant]
  16. PLAVIX [Concomitant]
  17. ATORVASTATIN [Concomitant]
  18. ALPRAZOLAM [Concomitant]
  19. VENTOLIN [Concomitant]
  20. MAGNESIUM OXIDE [Concomitant]

REACTIONS (2)
  - Ventilation perfusion mismatch [Unknown]
  - Oxygen saturation decreased [Unknown]
